FAERS Safety Report 12731087 (Version 1)
Quarter: 2016Q3

REPORT INFORMATION
  Report Type: Spontaneous
  Country: US (occurrence: US)
  Receive Date: 20160911
  Receipt Date: 20160911
  Transmission Date: 20161109
  Serious: No
  Sender: FDA-Public Use
  Company Number: US-ELI_LILLY_AND_COMPANY-US201609002292

PATIENT
  Age: 72 Year
  Sex: Female

DRUGS (14)
  1. FISH OIL [Concomitant]
     Active Substance: FISH OIL
  2. ATORVASTATIN [Concomitant]
     Active Substance: ATORVASTATIN
  3. HUMALOG [Suspect]
     Active Substance: INSULIN LISPRO
     Indication: TYPE 2 DIABETES MELLITUS
     Dosage: 8 U, TID
     Route: 065
     Dates: end: 201607
  4. HUMALOG [Suspect]
     Active Substance: INSULIN LISPRO
     Dosage: 8 U, TID
     Route: 065
  5. MAGNESIUM [Suspect]
     Active Substance: MAGNESIUM
     Indication: PRODUCT USED FOR UNKNOWN INDICATION
     Dosage: UNK, BID
     Route: 065
  6. ASPIRIN                            /00002701/ [Suspect]
     Active Substance: ASPIRIN
     Dosage: UNK, WEEKLY (1/W)
     Route: 065
  7. HUMALOG [Suspect]
     Active Substance: INSULIN LISPRO
     Indication: TYPE 2 DIABETES MELLITUS
     Dosage: 8 U, TID
     Route: 065
     Dates: start: 201607
  8. LOSARTAN. [Concomitant]
     Active Substance: LOSARTAN
  9. ASPIRIN                            /00002701/ [Suspect]
     Active Substance: ASPIRIN
     Indication: PRODUCT USED FOR UNKNOWN INDICATION
     Dosage: UNK, WEEKLY (1/W)
     Route: 065
     Dates: start: 201605
  10. VITAMIN D3 [Concomitant]
     Active Substance: CHOLECALCIFEROL
  11. HUMALOG [Suspect]
     Active Substance: INSULIN LISPRO
     Dosage: 8 U, TID
     Route: 065
  12. METFORMIN [Concomitant]
     Active Substance: METFORMIN HYDROCHLORIDE
  13. AZOR                               /00595201/ [Concomitant]
     Active Substance: ALPRAZOLAM
  14. AMLODIPINE [Concomitant]
     Active Substance: AMLODIPINE BESYLATE

REACTIONS (8)
  - Weight increased [Unknown]
  - Glycosylated haemoglobin increased [Recovering/Resolving]
  - Increased appetite [Recovered/Resolved]
  - Epistaxis [Recovered/Resolved]
  - Dry skin [Not Recovered/Not Resolved]
  - Abnormal faeces [Recovered/Resolved]
  - Heart rate irregular [Recovered/Resolved]
  - Blood glucose abnormal [Not Recovered/Not Resolved]

NARRATIVE: CASE EVENT DATE: 201511
